FAERS Safety Report 4512922-1 (Version None)
Quarter: 2004Q4

REPORT INFORMATION
  Report Type: 
  Country: None (occurrence: None)
  Receive Date: 20041124
  Receipt Date: 20041124
  Transmission Date: 20050328
  Serious: Yes (Hospitalization)
  Sender: FDA-Public Use
  Company Number: None

PATIENT
  Sex: Female
  Weight: 63.9572 kg

DRUGS (16)
  1. CETUZIMAB 100 MG /50 ML IMCLONE [Suspect]
     Indication: COLORECTAL CANCER METASTATIC
     Dosage: 400 MG/M2 WEEKLY IV
     Route: 042
     Dates: start: 20041116, end: 20041116
  2. OXALIPLATIN SANOFI-SYNTHELABO [Suspect]
     Indication: COLORECTAL CANCER METASTATIC
     Dosage: 85 MG/M2 Q2 WEEK IV
     Route: 042
     Dates: start: 20041116, end: 20041116
  3. LEUCOVORIN [Concomitant]
  4. FLUOROURACIL [Concomitant]
  5. AMITRYPTILLINE [Concomitant]
  6. PROTONIX [Concomitant]
  7. VITAMIN B-12 [Concomitant]
  8. FOLIC ACID [Concomitant]
  9. GLUCOSAMINE [Concomitant]
  10. MOBIC [Concomitant]
  11. PLAVIX [Concomitant]
  12. ATENOLOL [Concomitant]
  13. CALCIUM [Concomitant]
  14. PAXIL [Concomitant]
  15. HYDROMORPHONE [Concomitant]
  16. DIAEPAM [Concomitant]

REACTIONS (6)
  - ABDOMINAL PAIN LOWER [None]
  - DELIRIUM [None]
  - FATIGUE [None]
  - FEELING ABNORMAL [None]
  - HAEMATEMESIS [None]
  - MEMORY IMPAIRMENT [None]
